FAERS Safety Report 11847541 (Version 1)
Quarter: 2015Q4

REPORT INFORMATION
  Report Type: Spontaneous
  Country: US (occurrence: US)
  Receive Date: 20151217
  Receipt Date: 20151217
  Transmission Date: 20160305
  Serious: Yes (Death, Hospitalization, Other)
  Sender: FDA-Public Use
  Company Number: PHHY2015US162280

PATIENT
  Age: 49 Year
  Sex: Male

DRUGS (15)
  1. CETUXIMAB [Suspect]
     Active Substance: CETUXIMAB
     Indication: METASTASES TO SKIN
     Dosage: 400 MG/M2, UNK
     Route: 042
  2. 5-FLUOROURACIL [Suspect]
     Active Substance: FLUOROURACIL
     Indication: METASTASES TO LYMPH NODES
  3. PACLITAXEL. [Suspect]
     Active Substance: PACLITAXEL
     Indication: METASTASES TO SKIN
  4. PEGFILGRASTIM [Suspect]
     Active Substance: PEGFILGRASTIM
     Indication: PRODUCT USED FOR UNKNOWN INDICATION
     Dosage: 6 MG, UNK
     Route: 058
  5. MESNA. [Concomitant]
     Active Substance: MESNA
     Indication: PROPHYLAXIS
     Dosage: 200 MG/M2, UNK
     Route: 042
  6. CISPLATIN. [Suspect]
     Active Substance: CISPLATIN
     Indication: METASTASES TO LYMPH NODES
     Dosage: 75 UNK, UNK
  7. 5-FLUOROURACIL [Suspect]
     Active Substance: FLUOROURACIL
     Indication: ANAL CANCER
     Dosage: 1000 MG/M2, UNK
     Route: 042
  8. SULFAMETHOXAZOLE AND TRIMETHOPRIM [Suspect]
     Active Substance: SULFAMETHOXAZOLE\TRIMETHOPRIM
     Indication: CELLULITIS
     Route: 065
  9. IFOSFAMIDE. [Suspect]
     Active Substance: IFOSFAMIDE
     Indication: ANAL CANCER
     Dosage: 1000 MG/M2, QD
     Route: 065
  10. MITOMYCIN. [Suspect]
     Active Substance: MITOMYCIN
     Indication: METASTASES TO SKIN
     Dosage: 10 MG/M2, UNK
     Route: 042
  11. CETUXIMAB [Suspect]
     Active Substance: CETUXIMAB
     Dosage: 250 UNK, UNK
     Route: 065
  12. MESNA. [Concomitant]
     Active Substance: MESNA
     Dosage: 400 UNK, UNK
     Route: 065
  13. CISPLATIN. [Suspect]
     Active Substance: CISPLATIN
     Indication: ANAL CANCER
     Dosage: 60 MG/M2, UNK
     Route: 042
  14. IFOSFAMIDE. [Suspect]
     Active Substance: IFOSFAMIDE
     Indication: METASTASES TO SKIN
  15. PACLITAXEL. [Suspect]
     Active Substance: PACLITAXEL
     Indication: ANAL CANCER
     Dosage: 175 MG/M2, QD
     Route: 065

REACTIONS (14)
  - Anal cancer [Fatal]
  - Disease progression [Fatal]
  - Rectal abscess [Unknown]
  - Fatigue [Unknown]
  - Ulcer [Unknown]
  - Cellulitis [Unknown]
  - Infection [Unknown]
  - Rash [Unknown]
  - Alopecia [Unknown]
  - Drug ineffective [Unknown]
  - Febrile neutropenia [Unknown]
  - Metastases to skin [Unknown]
  - Anal injury [Unknown]
  - Therapeutic response decreased [Unknown]
